FAERS Safety Report 6801814-0 (Version None)
Quarter: 2010Q2

REPORT INFORMATION
  Report Type: 
  Country: None (occurrence: None)
  Receive Date: 20100629
  Receipt Date: 20100621
  Transmission Date: 20101027
  Serious: Yes (Other)
  Sender: FDA-Public Use
  Company Number: GB-WYE-G06304510

PATIENT
  Sex: Male

DRUGS (2)
  1. VENLAFAXINE HYDROCHLORIDE [Suspect]
     Dosage: UNKNOWN
  2. ZYVOX [Interacting]
     Dosage: UNKNOWN

REACTIONS (2)
  - CONVULSION [None]
  - DRUG INTERACTION [None]
